FAERS Safety Report 8461248-2 (Version None)
Quarter: 2012Q2

REPORT INFORMATION
  Report Type: 
  Country: None (occurrence: None)
  Receive Date: 20120619
  Receipt Date: 20120619
  Transmission Date: 20120825
  Serious: Yes (Other)
  Sender: FDA-Public Use
  Company Number: None

PATIENT
  Sex: Male

DRUGS (1)
  1. AZITHROMYCIN 250/500MG [Suspect]
     Indication: EMPHYSEMA
     Dosage: 7-10 DAYS

REACTIONS (2)
  - PRURITUS [None]
  - RASH ERYTHEMATOUS [None]
